FAERS Safety Report 4868581-1 (Version None)
Quarter: 2005Q4

REPORT INFORMATION
  Report Type: 
  Country: None (occurrence: None)
  Receive Date: 20051223
  Receipt Date: 20051215
  Transmission Date: 20060501
  Serious: Yes (Hospitalization)
  Sender: FDA-Public Use
  Company Number: 2005169601

PATIENT
  Age: 30 Year
  Sex: Female

DRUGS (3)
  1. SULFASALAZINE [Suspect]
     Indication: ARTHRITIS
     Dosage: 2000 MG (1000 MG, 2 IN 1 D), ORAL
     Route: 048
     Dates: start: 20050824, end: 20050916
  2. CENTYL MITE W/POTASSIUM CHLORIDE          (BENDROFLUMETHIAZIDE, POTASS [Concomitant]
  3. MILVANE   (ETHINYLESTRADIOL, GESTODENE) [Concomitant]

REACTIONS (1)
  - LYMPHADENOPATHY [None]
